FAERS Safety Report 11859556 (Version 1)
Quarter: 2015Q4

REPORT INFORMATION
  Report Type: Spontaneous
  Country: NL (occurrence: NL)
  Receive Date: 20151221
  Receipt Date: 20151221
  Transmission Date: 20160305
  Serious: Yes (Other)
  Sender: FDA-Public Use
  Company Number: NL-JNJFOC-20151212401

PATIENT
  Age: 12 Year
  Sex: Male
  Weight: 52 kg

DRUGS (2)
  1. RISPERIDON DRANK [Suspect]
     Active Substance: RISPERIDONE
     Indication: ABNORMAL BEHAVIOUR
     Route: 048
     Dates: start: 201405, end: 201509
  2. CONCERTA [Suspect]
     Active Substance: METHYLPHENIDATE HYDROCHLORIDE
     Indication: ATTENTION DEFICIT/HYPERACTIVITY DISORDER
     Route: 048
     Dates: start: 2013

REACTIONS (1)
  - Galactorrhoea [Recovered/Resolved with Sequelae]

NARRATIVE: CASE EVENT DATE: 201412
